FAERS Safety Report 8574348-3 (Version None)
Quarter: 2012Q3

REPORT INFORMATION
  Report Type: 
  Country: None (occurrence: None)
  Receive Date: 20120806
  Receipt Date: 20120723
  Transmission Date: 20120928
  Serious: Yes (Life-Threatening)
  Sender: FDA-Public Use
  Company Number: CHPA2012US001695

PATIENT
  Age: 23 Year
  Sex: Male

DRUGS (3)
  1. EXCEDRIN EXTRA STRENGTH TABLETS [Suspect]
     Dosage: 2 DF, Q4-5 HOURS
     Route: 048
     Dates: start: 20110904, end: 20110904
  2. AUGMENTIN '125' [Concomitant]
     Indication: ARTHROPOD BITE
     Dosage: UNK, UNK
     Dates: start: 20110101, end: 20110101
  3. EXCEDRIN EXTRA STRENGTH TABLETS [Suspect]
     Indication: HEADACHE
     Dosage: 2 DF, Q4-5 HOURS
     Route: 048
     Dates: start: 20110901, end: 20111211

REACTIONS (5)
  - ANAPHYLACTIC REACTION [None]
  - INAPPROPRIATE SCHEDULE OF DRUG ADMINISTRATION [None]
  - DYSPNOEA [None]
  - RASH [None]
  - HYPOTENSION [None]
